FAERS Safety Report 9920199 (Version 2)
Quarter: 2014Q1

REPORT INFORMATION
  Report Type: Spontaneous
  Country: GB (occurrence: GB)
  Receive Date: 20140224
  Receipt Date: 20140224
  Transmission Date: 20141002
  Serious: Yes (Other)
  Sender: FDA-Public Use
  Company Number: PHHY2014GB013564

PATIENT
  Age: 40 Year
  Sex: Female
  Weight: 60 kg

DRUGS (11)
  1. NAPROXEN [Suspect]
     Indication: BACK PAIN
     Dosage: 1000 MG, UNK
     Route: 048
     Dates: start: 20131201, end: 20140101
  2. OMEPRAZOLE [Suspect]
     Indication: BACK PAIN
     Dosage: 20 MG, UNK
     Route: 048
     Dates: start: 20131201, end: 20140101
  3. ZAPAIN [Concomitant]
  4. CODEINE [Concomitant]
  5. IBUPROFEN [Concomitant]
  6. TRAMADOL [Concomitant]
  7. GABAPENTIN [Concomitant]
  8. LEVOTHYROXINE [Concomitant]
  9. MAGNESIUM [Concomitant]
  10. SELENIUM [Concomitant]
  11. VITAMINS NOS [Concomitant]

REACTIONS (4)
  - Skin exfoliation [Not Recovered/Not Resolved]
  - Dry skin [Not Recovered/Not Resolved]
  - Pain of skin [Not Recovered/Not Resolved]
  - Discomfort [Not Recovered/Not Resolved]
